FAERS Safety Report 10195620 (Version 1)
Quarter: 2014Q2

REPORT INFORMATION
  Report Type: Spontaneous
  Country: IT (occurrence: IT)
  Receive Date: 20140527
  Receipt Date: 20140527
  Transmission Date: 20141212
  Serious: Yes (Hospitalization)
  Sender: FDA-Public Use
  Company Number: IT-009507513-1405ITA010275

PATIENT
  Age: 65 Year
  Sex: Male

DRUGS (2)
  1. VICTRELIS [Suspect]
     Indication: CHRONIC HEPATITIS C
     Dosage: TOTAL DAILY DOSE: 2400 MG
     Route: 048
     Dates: start: 20140414
  2. PEGINTERFERON ALFA-2B [Concomitant]

REACTIONS (3)
  - Enterococcal sepsis [Recovered/Resolved]
  - Cholecystitis acute [Recovered/Resolved]
  - Urinary tract infection [Recovered/Resolved]
